FAERS Safety Report 4840400-9 (Version None)
Quarter: 2005Q4

REPORT INFORMATION
  Report Type: 
  Country: None (occurrence: None)
  Receive Date: 20051024
  Receipt Date: 20050725
  Transmission Date: 20060501
  Serious: Yes (Hospitalization)
  Sender: FDA-Public Use
  Company Number: USA-2005-0020838

PATIENT
  Age: 49 Year
  Sex: Male

DRUGS (4)
  1. PALLADONE [Suspect]
     Indication: PAIN
     Dosage: 24 MG, Q24H, ORAL
     Route: 048
     Dates: start: 20050714
  2. LISINOPRIL [Concomitant]
  3. LOPRESSOR [Concomitant]
  4. NORVASC [Concomitant]

REACTIONS (4)
  - MALAISE [None]
  - RENAL IMPAIRMENT [None]
  - RESPIRATORY DEPRESSION [None]
  - SOMNOLENCE [None]
